FAERS Safety Report 6240746-6 (Version None)
Quarter: 2009Q2

REPORT INFORMATION
  Report Type: 
  Country: None (occurrence: None)
  Receive Date: 20090619
  Receipt Date: 20090619
  Transmission Date: 20091009
  Serious: No
  Sender: FDA-Public Use
  Company Number: None

PATIENT
  Sex: Female
  Weight: 65.318 kg

DRUGS (2)
  1. RHO(D) IMMUNE GLOBULIN NOS [Suspect]
     Indication: PREGNANCY
     Dosage: 300 MICROGRAMS 1 DOSE IM
     Route: 042
     Dates: start: 20090615, end: 20090615
  2. RHO(D) IMMUNE GLOBULIN NOS [Suspect]
     Indication: RHESUS ANTIBODIES NEGATIVE
     Dosage: 300 MICROGRAMS 1 DOSE IM
     Route: 042
     Dates: start: 20090615, end: 20090615

REACTIONS (4)
  - FEELING ABNORMAL [None]
  - HEADACHE [None]
  - NAUSEA [None]
  - VOMITING [None]
